FAERS Safety Report 6687520-4 (Version None)
Quarter: 2010Q2

REPORT INFORMATION
  Report Type: 
  Country: None (occurrence: None)
  Receive Date: 20100419
  Receipt Date: 20090914
  Transmission Date: 20101027
  Serious: No
  Sender: FDA-Public Use
  Company Number: US-ABBOTT-09P-163-0597497-00

PATIENT
  Sex: Female
  Weight: 93.07 kg

DRUGS (2)
  1. LUPRON DEPOT-PED [Suspect]
     Indication: HORMONE SUPPRESSION THERAPY
     Dosage: PEDIATRIC
     Route: 030
     Dates: start: 20090908, end: 20090908
  2. TAMOXIFEN CITRATE [Concomitant]
     Indication: BREAST CANCER
     Route: 048

REACTIONS (1)
  - INCORRECT DOSE ADMINISTERED [None]
